FAERS Safety Report 4624656-3 (Version None)
Quarter: 2005Q1

REPORT INFORMATION
  Report Type: 
  Country: None (occurrence: None)
  Receive Date: 20050107
  Receipt Date: 20041124
  Transmission Date: 20050727
  Serious: No
  Sender: FDA-Public Use
  Company Number: 235792K04USA

PATIENT
  Age: 34 Year
  Sex: Female

DRUGS (8)
  1. REBIF [Suspect]
     Indication: MULTIPLE SCLEROSIS
     Dosage: 44 MCG, 3 IN 1 WEEKS, SUBCUTANEOUS
     Route: 058
     Dates: start: 20021127
  2. ZOCOR [Suspect]
     Dosage: NOT REPORTED
     Dates: start: 20041001
  3. NEURONTIN [Concomitant]
  4. BACLOFEN [Concomitant]
  5. VALIUM [Concomitant]
  6. DARVOCET [Concomitant]
  7. ANTIVERT (MECLOZINE HYDROCHLORIDE) [Concomitant]
  8. AMBIEN [Concomitant]

REACTIONS (5)
  - ALOPECIA [None]
  - BLISTER [None]
  - HAEMORRHAGE [None]
  - HYPERCHOLESTEROLAEMIA [None]
  - MULTIPLE SCLEROSIS RELAPSE [None]
